FAERS Safety Report 9283610 (Version 2)
Quarter: 2013Q2

REPORT INFORMATION
  Report Type: Report from Study
  Country: US (occurrence: US)
  Receive Date: 20130510
  Receipt Date: 20130605
  Transmission Date: 20140414
  Serious: Yes (Other)
  Sender: FDA-Public Use
  Company Number: US-ABBOTT-13P-163-1083884-00

PATIENT
  Age: 53 Year
  Sex: Female
  Weight: 115 kg

DRUGS (14)
  1. HUMIRA [Suspect]
     Indication: PSORIASIS
     Route: 058
     Dates: start: 20100907
  2. HUMIRA [Suspect]
     Route: 058
     Dates: start: 20120312, end: 20130216
  3. PRAVASTATIN SODIUM [Concomitant]
     Indication: HYPERLIPIDAEMIA
     Dates: start: 2010
  4. METFORMIN [Concomitant]
     Indication: METABOLIC SYNDROME
     Dates: start: 2008
  5. METFORMIN [Concomitant]
     Indication: DIABETES MELLITUS
  6. TRAMADOL [Concomitant]
     Indication: ARTHRALGIA
     Dates: end: 20120603
  7. TRAMADOL [Concomitant]
     Indication: FIBROMYALGIA
     Dates: start: 20120604, end: 20120823
  8. TRAMADOL [Concomitant]
     Dates: start: 20120914
  9. OLMESARTAN MEDOXOMIL [Concomitant]
     Indication: HYPERTENSION
     Dates: start: 20120604, end: 20130213
  10. OLMESARTAN MEDOXOMIL [Concomitant]
     Indication: METABOLIC SYNDROME
     Dates: start: 20130214
  11. OLMESARTAN MEDOXOMIL [Concomitant]
     Indication: BLOOD PRESSURE MANAGEMENT
  12. FESOTERODINE FUMARATE [Concomitant]
     Indication: HYPERTONIC BLADDER
     Dates: start: 20120626
  13. KETOCONAZOLE [Concomitant]
     Indication: SEBORRHOEIC DERMATITIS
  14. KETOCONAZOLE [Concomitant]
     Indication: INTERTRIGO

REACTIONS (1)
  - Ovarian cancer metastatic [Not Recovered/Not Resolved]
